FAERS Safety Report 12305989 (Version 1)
Quarter: 2016Q2

REPORT INFORMATION
  Report Type: Other
  Country: US (occurrence: US)
  Receive Date: 20160426
  Receipt Date: 20160426
  Transmission Date: 20160815
  Serious: Yes (Hospitalization, Other)
  Sender: FDA-Public Use
  Company Number: US-MDT-ADR-2016-00738

PATIENT
  Age: 1 Day
  Sex: Female

DRUGS (6)
  1. NITROFURANTOIN. [Suspect]
     Active Substance: NITROFURANTOIN
     Route: 015
  2. GABAPENTIN. [Suspect]
     Active Substance: GABAPENTIN
     Route: 015
  3. LOW MOLECULAR WEIGHT HEPARIN [Suspect]
     Active Substance: UNSPECIFIED INGREDIENT
     Route: 015
  4. TIZANIDINE. [Suspect]
     Active Substance: TIZANIDINE
     Route: 015
  5. BACLOFEN. [Suspect]
     Active Substance: BACLOFEN
     Route: 015
  6. TRAZODONE [Suspect]
     Active Substance: TRAZODONE HYDROCHLORIDE
     Route: 015

REACTIONS (12)
  - Hypertonia [Recovered/Resolved]
  - Foetal exposure during pregnancy [Recovered/Resolved]
  - Diarrhoea [Recovered/Resolved]
  - Hyperreflexia [Recovered/Resolved]
  - Tremor [Recovered/Resolved]
  - Drug withdrawal syndrome [Recovered/Resolved]
  - Large for dates baby [Unknown]
  - Hypophagia [Recovered/Resolved]
  - Faeces discoloured [Recovered/Resolved]
  - Selective eating disorder [Recovered/Resolved]
  - Retching [Recovered/Resolved]
  - Sneezing [Recovered/Resolved]
